FAERS Safety Report 12679674 (Version 1)
Quarter: 2016Q3

REPORT INFORMATION
  Report Type: Spontaneous
  Country: US (occurrence: US)
  Receive Date: 20160824
  Receipt Date: 20160824
  Transmission Date: 20161109
  Serious: No
  Sender: FDA-Public Use
  Company Number: US-PFIZER INC-2016399406

PATIENT
  Age: 46 Year
  Sex: Male

DRUGS (1)
  1. ZOLOFT [Suspect]
     Active Substance: SERTRALINE HYDROCHLORIDE
     Indication: DEPRESSION
     Dosage: UNK

REACTIONS (5)
  - Antisocial behaviour [Unknown]
  - Thinking abnormal [Unknown]
  - Abnormal behaviour [Unknown]
  - Compulsive sexual behaviour [Unknown]
  - Drug interaction [Unknown]
